FAERS Safety Report 4403074-7 (Version None)
Quarter: 2004Q3

REPORT INFORMATION
  Report Type: 
  Country: None (occurrence: None)
  Receive Date: 20040721
  Receipt Date: 20040217
  Transmission Date: 20050211
  Serious: No
  Sender: FDA-Public Use
  Company Number: US-GLAXOSMITHKLINE-A0498559A

PATIENT
  Age: 65 Year
  Sex: Female

DRUGS (6)
  1. IMITREX [Suspect]
     Indication: MIGRAINE
     Dosage: 50MG AS REQUIRED
     Route: 048
  2. VERAPAMIL [Concomitant]
  3. FIORINAL [Concomitant]
  4. THYROID TAB [Concomitant]
  5. HYDROCODONE [Concomitant]
  6. DIAZEPAM [Concomitant]

REACTIONS (3)
  - CHEILITIS [None]
  - STOMATITIS [None]
  - VOMITING [None]
